FAERS Safety Report 13838864 (Version 2)
Quarter: 2017Q3

REPORT INFORMATION
  Report Type: Spontaneous
  Country: US (occurrence: US)
  Receive Date: 20170807
  Receipt Date: 20170911
  Transmission Date: 20171127
  Serious: No
  Sender: FDA-Public Use
  Company Number: US-PFIZER INC-2017338427

PATIENT
  Age: 70 Year
  Sex: Female
  Weight: 89.81 kg

DRUGS (1)
  1. ADVIL [Suspect]
     Active Substance: IBUPROFEN
     Indication: PAIN
     Dosage: 200MG 2 CAPSULES BY MOUTH AS NEEDED
     Route: 048
     Dates: end: 201707

REACTIONS (3)
  - Product taste abnormal [Recovered/Resolved]
  - Dysgeusia [Recovered/Resolved]
  - Oral discomfort [Recovered/Resolved]

NARRATIVE: CASE EVENT DATE: 201706
